FAERS Safety Report 16892989 (Version 1)
Quarter: 2019Q4

REPORT INFORMATION
  Report Type: Report from Study
  Country: US (occurrence: US)
  Receive Date: 20191008
  Receipt Date: 20191008
  Transmission Date: 20200122
  Serious: Yes (Other)
  Sender: FDA-Public Use
  Company Number: US-BEH-2019107501

PATIENT
  Age: 72 Year
  Sex: Female

DRUGS (2)
  1. BERINERT [Suspect]
     Active Substance: HUMAN C1-ESTERASE INHIBITOR
     Route: 065
  2. BERINERT [Suspect]
     Active Substance: HUMAN C1-ESTERASE INHIBITOR
     Route: 065

REACTIONS (6)
  - Abdominal distension [Unknown]
  - Fatigue [Unknown]
  - Device related infection [Unknown]
  - Unevaluable event [Unknown]
  - Swelling [Unknown]
  - Nausea [Unknown]

NARRATIVE: CASE EVENT DATE: 20190919
